FAERS Safety Report 7133906-3 (Version None)
Quarter: 2010Q4

REPORT INFORMATION
  Report Type: 
  Country: None (occurrence: None)
  Receive Date: 20101203
  Receipt Date: 20101025
  Transmission Date: 20110411
  Serious: Yes (Other)
  Sender: FDA-Public Use
  Company Number: US-BAYER-201038707NA

PATIENT

DRUGS (3)
  1. YAZ [Suspect]
     Route: 048
     Dates: start: 20080301
  2. YASMIN [Suspect]
     Route: 048
     Dates: start: 20080301
  3. OCELLA [Suspect]
     Route: 048
     Dates: start: 20080301

REACTIONS (1)
  - PULMONARY EMBOLISM [None]
